FAERS Safety Report 6787091-8 (Version None)
Quarter: 2010Q2

REPORT INFORMATION
  Report Type: 
  Country: None (occurrence: None)
  Receive Date: 20100623
  Receipt Date: 20100616
  Transmission Date: 20101027
  Serious: Yes (Hospitalization)
  Sender: FDA-Public Use
  Company Number: PHHO2009DE08837

PATIENT
  Sex: Male
  Weight: 75.5 kg

DRUGS (6)
  1. CERTICAN [Suspect]
     Indication: RENAL TRANSPLANT
     Dosage: 2-3 MG / DAY
     Route: 048
     Dates: start: 20080108, end: 20080503
  2. SANDIMMUNE [Suspect]
     Indication: RENAL TRANSPLANT
     Dosage: 200MG/DAY
     Route: 048
     Dates: start: 20080505, end: 20080508
  3. SANDIMMUNE [Suspect]
     Dosage: 220MG/DAY
     Route: 048
     Dates: start: 20080509, end: 20080603
  4. SANDIMMUNE [Suspect]
     Dosage: 160MG/DAY
     Dates: start: 20080604, end: 20080619
  5. SANDIMMUNE [Suspect]
     Dosage: UNK
     Route: 048
     Dates: start: 20080620, end: 20080719
  6. MYFORTIC [Concomitant]
     Indication: RENAL TRANSPLANT
     Dosage: 720-1440 MG / DAY
     Route: 048
     Dates: start: 20080108, end: 20080513

REACTIONS (3)
  - BLOOD CREATININE INCREASED [None]
  - GLOMERULONEPHRITIS PROLIFERATIVE [None]
  - THERAPEUTIC AGENT TOXICITY [None]
